FAERS Safety Report 9928006 (Version 3)
Quarter: 2014Q1

REPORT INFORMATION
  Report Type: Spontaneous
  Country: US (occurrence: US)
  Receive Date: 20140227
  Receipt Date: 20140325
  Transmission Date: 20141002
  Serious: No
  Sender: FDA-Public Use
  Company Number: US-PFIZER INC-2014054696

PATIENT
  Age: 85 Year
  Sex: Female
  Weight: 55.78 kg

DRUGS (3)
  1. NICOTROL INHALER [Suspect]
     Dosage: UNK
     Dates: start: 20140222
  2. VITAMIN D [Concomitant]
     Dosage: UNK
  3. ASPIRIN [Concomitant]
     Indication: CARDIAC DISORDER
     Dosage: 81 MG, DAILY

REACTIONS (1)
  - Throat irritation [Unknown]
